FAERS Safety Report 9264100 (Version 3)
Quarter: 2014Q4

REPORT INFORMATION
  Report Type: Report from Study
  Country: JP (occurrence: JP)
  Receive Date: 20130430
  Receipt Date: 20141105
  Transmission Date: 20150529
  Serious: Yes (Hospitalization, Other)
  Sender: FDA-Public Use
  Company Number: JP-BRISTOL-MYERS SQUIBB COMPANY-16317331

PATIENT
  Age: 32 Year
  Sex: Male

DRUGS (11)
  1. GASTER [Concomitant]
     Active Substance: FAMOTIDINE
     Indication: GASTRIC ULCER
     Dosage: TAB
     Route: 048
     Dates: start: 20100319
  2. MYSLEE [Concomitant]
     Active Substance: ZOLPIDEM TARTRATE
     Indication: INSOMNIA
     Dosage: TAB
     Route: 048
     Dates: start: 20101207
  3. LAXOBERON [Concomitant]
     Active Substance: SODIUM PICOSULFATE
     Dosage: 1 DF = 10GTT/TIME,SOLN
     Route: 048
     Dates: start: 20101105
  4. CONSTAN [Concomitant]
     Active Substance: ALPRAZOLAM
     Indication: OBSESSIVE-COMPULSIVE DISORDER
     Dosage: TAB
     Route: 048
     Dates: start: 20101207
  5. AMOXAN [Suspect]
     Active Substance: AMOXAPINE
     Dosage: APR2013-1500MG (OVERDOSE)
  6. LUVOX [Concomitant]
     Active Substance: FLUVOXAMINE MALEATE
     Indication: OBSESSIVE-COMPULSIVE DISORDER
     Dosage: TAB
     Route: 048
     Dates: start: 20101207
  7. AMOXAN [Concomitant]
     Active Substance: AMOXAPINE
     Indication: OBSESSIVE-COMPULSIVE DISORDER
     Dosage: CAP
     Route: 048
     Dates: start: 20101207
  8. FLUVOXAMINE MALEATE. [Suspect]
     Active Substance: FLUVOXAMINE MALEATE
     Dosage: TABS?APR2013-1500MG (OVERDOSE)
     Dates: start: 20110105
  9. DESYREL TABS [Concomitant]
     Indication: OBSESSIVE-COMPULSIVE DISORDER
     Route: 048
     Dates: start: 20101207, end: 20110108
  10. SPRYCEL [Suspect]
     Active Substance: DASATINIB
     Indication: CHRONIC MYELOID LEUKAEMIA
     Dosage: 100MG/DAY :22-JUL-2011 -22-AUG-2011.?08APR13:TOOK 50MGX50TABS?APR2013=OVERDOSE:3000 MG?32MG/KG
     Route: 048
     Dates: start: 20091109
  11. HALCION [Concomitant]
     Active Substance: TRIAZOLAM
     Indication: INSOMNIA
     Dosage: TAB
     Route: 048
     Dates: start: 20101207

REACTIONS (7)
  - Hyperuricaemia [Unknown]
  - Suicide attempt [Recovered/Resolved]
  - Leukopenia [Unknown]
  - Overdose [Unknown]
  - Toxicity to various agents [Recovered/Resolved]
  - Diarrhoea [Recovered/Resolved]
  - Vomiting [Unknown]

NARRATIVE: CASE EVENT DATE: 20110105
